FAERS Safety Report 7809215-3 (Version None)
Quarter: 2011Q4

REPORT INFORMATION
  Report Type: 
  Country: None (occurrence: None)
  Receive Date: 20111012
  Receipt Date: 20110930
  Transmission Date: 20120403
  Serious: Yes (Hospitalization)
  Sender: FDA-Public Use
  Company Number: US-CELGENEUS-163-21660-11100092

PATIENT
  Sex: Male
  Weight: 95.839 kg

DRUGS (4)
  1. CIPROFLOXACIN [Concomitant]
     Indication: CELLULITIS
     Dosage: 500 MILLIGRAM
     Route: 048
     Dates: start: 20110804, end: 20110814
  2. ABRAXANE [Suspect]
     Dosage: 214 MILLIGRAM
     Route: 041
     Dates: start: 20110722
  3. ABRAXANE [Suspect]
     Dosage: 214 MILLIGRAM
     Route: 041
     Dates: start: 20110919
  4. CEPHALEXIN MONOHYDRATE [Concomitant]
     Indication: CELLULITIS
     Dosage: 500 MILLIGRAM
     Route: 048
     Dates: start: 20110902, end: 20110913

REACTIONS (1)
  - SKIN INFECTION [None]
